FAERS Safety Report 4334783-6 (Version None)
Quarter: 2004Q2

REPORT INFORMATION
  Report Type: 
  Country: None (occurrence: None)
  Receive Date: 20040407
  Receipt Date: 20040407
  Transmission Date: 20050107
  Serious: Yes (Life-Threatening)
  Sender: FDA-Public Use
  Company Number: None

PATIENT
  Sex: Female

DRUGS (1)
  1. EPINEPHRINE [Suspect]
     Indication: STRIDOR
     Dosage: 0.5 MG IV X 1
     Route: 042
     Dates: start: 20031130

REACTIONS (4)
  - BLOOD PRESSURE DECREASED [None]
  - MEDICATION ERROR [None]
  - STRIDOR [None]
  - VENTRICULAR TACHYCARDIA [None]
